FAERS Safety Report 4846140-4 (Version None)
Quarter: 2005Q4

REPORT INFORMATION
  Report Type: 
  Country: None (occurrence: None)
  Receive Date: 20051201
  Receipt Date: 20051117
  Transmission Date: 20060501
  Serious: Yes (Hospitalization, Other)
  Sender: FDA-Public Use
  Company Number: 2005152951

PATIENT
  Age: 61 Year
  Sex: Male

DRUGS (5)
  1. LIPITOR [Suspect]
     Indication: HYPERCHOLESTEROLAEMIA
     Dosage: 5 MG (1 IN 1 D), ORAL
     Route: 048
     Dates: end: 20050825
  2. BROTIZOLAM (BROTIZOLAM) [Suspect]
     Indication: INSOMNIA
     Dosage: 0.125 MG (1 IN 1 D), ORAL
     Route: 048
     Dates: end: 20050825
  3. CEFDINIR [Concomitant]
  4. RASENAZOLIN (CEFAZOLIN SODIUM) [Concomitant]
  5. DISOPYRAMIDE [Concomitant]

REACTIONS (5)
  - ALANINE AMINOTRANSFERASE INCREASED [None]
  - ASPARTATE AMINOTRANSFERASE INCREASED [None]
  - IMPLANTABLE DEFIBRILLATOR INSERTION [None]
  - INSOMNIA [None]
  - LIVER DISORDER [None]
